FAERS Safety Report 25908189 (Version 1)
Quarter: 2025Q4

REPORT INFORMATION
  Report Type: Spontaneous
  Country: US (occurrence: US)
  Receive Date: 20251010
  Receipt Date: 20251010
  Transmission Date: 20260117
  Serious: Yes (Other)
  Sender: ABBVIE
  Company Number: US-ABBVIE-6496734

PATIENT

DRUGS (1)
  1. RINVOQ [Suspect]
     Active Substance: UPADACITINIB
     Indication: Product used for unknown indication
     Route: 048
     Dates: start: 2023

REACTIONS (11)
  - Liver disorder [Unknown]
  - Headache [Unknown]
  - Ear congestion [Unknown]
  - Tinnitus [Unknown]
  - Ear infection [Unknown]
  - Respiratory tract infection [Unknown]
  - Rash [Unknown]
  - Pruritus [Unknown]
  - Drug ineffective [Unknown]
  - Anxiety [Unknown]
  - Arthralgia [Not Recovered/Not Resolved]
